FAERS Safety Report 4353989-3 (Version None)
Quarter: 2004Q2

REPORT INFORMATION
  Report Type: 
  Country: None (occurrence: None)
  Receive Date: 20040506
  Receipt Date: 20040315
  Transmission Date: 20050107
  Serious: No
  Sender: FDA-Public Use
  Company Number: US-GLAXOSMITHKLINE-A0502933A

PATIENT
  Sex: Male

DRUGS (1)
  1. AVANDAMET [Suspect]
     Indication: ILL-DEFINED DISORDER
     Route: 048
     Dates: start: 20040301

REACTIONS (4)
  - EUPHORIC MOOD [None]
  - FATIGUE [None]
  - PAIN [None]
  - TINNITUS [None]
